FAERS Safety Report 13133118 (Version 1)
Quarter: 2017Q1

REPORT INFORMATION
  Report Type: Spontaneous
  Country: US (occurrence: US)
  Receive Date: 20170118
  Receipt Date: 20170118
  Transmission Date: 20170428
  Serious: Yes (Hospitalization)
  Sender: FDA-Public Use
  Company Number: None

PATIENT
  Age: 77 Year
  Sex: Female

DRUGS (7)
  1. SENNOSIDES. [Concomitant]
     Active Substance: SENNOSIDES
  2. LACTULOSE. [Concomitant]
     Active Substance: LACTULOSE
  3. LETAIRIS [Suspect]
     Active Substance: AMBRISENTAN
     Indication: HEART DISEASE CONGENITAL
     Route: 048
     Dates: start: 200811
  4. TIZANIDINE. [Concomitant]
     Active Substance: TIZANIDINE
  5. DOCUSATE [Concomitant]
     Active Substance: DOCUSATE
  6. LEVOTHYRO [Concomitant]
  7. TREPROSTINIL [Concomitant]
     Active Substance: TREPROSTINIL

REACTIONS (6)
  - Peripheral swelling [None]
  - Condition aggravated [None]
  - Chest discomfort [None]
  - Dyspnoea [None]
  - Joint swelling [None]
  - Fluid overload [None]

NARRATIVE: CASE EVENT DATE: 20170111
